FAERS Safety Report 18102537 (Version 1)
Quarter: 2020Q3

REPORT INFORMATION
  Report Type: Spontaneous
  Country: US (occurrence: US)
  Receive Date: 20200803
  Receipt Date: 20200803
  Transmission Date: 20201103
  Serious: Yes (Hospitalization, Other)
  Sender: FDA-Public Use
  Company Number: US-AUROBINDO-AUR-APL-2010-00859

PATIENT
  Age: 19 Month
  Sex: Female

DRUGS (1)
  1. CYCLOBENZAPRINE. [Suspect]
     Active Substance: CYCLOBENZAPRINE
     Indication: PRODUCT USED FOR UNKNOWN INDICATION
     Dosage: UNK
     Route: 065

REACTIONS (9)
  - Irritability [Unknown]
  - Vomiting [Unknown]
  - Acute disseminated encephalomyelitis [Unknown]
  - Sinus tachycardia [Unknown]
  - Nystagmus [Unknown]
  - Screaming [Unknown]
  - Accidental exposure to product [Unknown]
  - Somnolence [Unknown]
  - Gait disturbance [Unknown]
